FAERS Safety Report 23604062 (Version 1)
Quarter: 2024Q1

REPORT INFORMATION
  Report Type: Report from Study
  Country: US (occurrence: US)
  Receive Date: 20240307
  Receipt Date: 20240307
  Transmission Date: 20240409
  Serious: Yes (Other)
  Sender: FDA-Public Use
  Company Number: US-TEVA-VS-3165477

PATIENT
  Age: 59 Year
  Sex: Female

DRUGS (12)
  1. AUSTEDO [Suspect]
     Active Substance: DEUTETRABENAZINE
     Indication: Dyskinesia
     Route: 048
     Dates: start: 20240226
  2. ARIPIPRAZOLE [Concomitant]
     Active Substance: ARIPIPRAZOLE
  3. LOSARTAN POTASSIUM [Concomitant]
     Active Substance: LOSARTAN POTASSIUM
  4. MELOXICAM [Concomitant]
     Active Substance: MELOXICAM
  5. NADOLOL [Concomitant]
     Active Substance: NADOLOL
  6. PRAZOSIN HYDROCHLORIDE [Concomitant]
     Active Substance: PRAZOSIN HYDROCHLORIDE
  7. sertraline H [Concomitant]
  8. Ventolin HFA AER [Concomitant]
     Dosage: 108(90)
  9. TOPIRAMATE [Concomitant]
     Active Substance: TOPIRAMATE
  10. TRIAMCINOLONE [Concomitant]
     Active Substance: TRIAMCINOLONE
  11. spiriva respi aer [Concomitant]
     Dosage: 2.5 MCG/A
     Route: 055
  12. SUNOSI [Concomitant]
     Active Substance: SOLRIAMFETOL

REACTIONS (2)
  - Angina pectoris [Unknown]
  - Somnolence [Unknown]

NARRATIVE: CASE EVENT DATE: 20240226
